FAERS Safety Report 7295350-8 (Version None)
Quarter: 2011Q1

REPORT INFORMATION
  Report Type: 
  Country: None (occurrence: None)
  Receive Date: 20110216
  Receipt Date: 20110202
  Transmission Date: 20110831
  Serious: Yes (Other)
  Sender: FDA-Public Use
  Company Number: US-CELGENEUS-163-C5013-11020679

PATIENT
  Sex: Male
  Weight: 82.3 kg

DRUGS (7)
  1. MELPHALAN [Suspect]
     Indication: MULTIPLE MYELOMA
     Route: 065
     Dates: start: 20090729
  2. MELPHALAN [Suspect]
     Route: 065
     Dates: start: 20101020, end: 20101022
  3. THALIDOMIDE [Suspect]
     Indication: MULTIPLE MYELOMA
     Route: 048
     Dates: start: 20090729
  4. THALIDOMIDE [Suspect]
     Route: 048
     Dates: start: 20101020, end: 20101022
  5. PRILOSEC [Concomitant]
     Route: 065
  6. PREDNISONE TAB [Suspect]
     Indication: MULTIPLE MYELOMA
     Route: 065
     Dates: start: 20090729
  7. PREDNISONE TAB [Suspect]
     Route: 065
     Dates: start: 20101020, end: 20101022

REACTIONS (1)
  - OESOPHAGEAL CARCINOMA [None]
